FAERS Safety Report 10968862 (Version 1)
Quarter: 2015Q1

REPORT INFORMATION
  Report Type: Spontaneous
  Country: IT (occurrence: IT)
  Receive Date: 20150331
  Receipt Date: 20150331
  Transmission Date: 20150721
  Serious: Yes (Hospitalization)
  Sender: FDA-Public Use
  Company Number: IT-AUROBINDO-AUR-APL-2015-02745

PATIENT
  Age: 88 Year
  Sex: Female
  Weight: 75 kg

DRUGS (1)
  1. ALENDRONIC ACID 70 [Suspect]
     Active Substance: ALENDRONIC ACID
     Indication: OSTEOPOROSIS
     Dosage: 70 MG, EVERY WEEK
     Route: 048
     Dates: start: 20090401, end: 20140401

REACTIONS (1)
  - Osteitis [Recovered/Resolved with Sequelae]

NARRATIVE: CASE EVENT DATE: 20140501
